FAERS Safety Report 15245840 (Version 2)
Quarter: 2018Q3

REPORT INFORMATION
  Report Type: Report from Study
  Country: IL (occurrence: IL)
  Receive Date: 20180806
  Receipt Date: 20180809
  Transmission Date: 20181010
  Serious: Yes (Other)
  Sender: FDA-Public Use
  Company Number: PHHY2018IL014462

PATIENT
  Sex: Female

DRUGS (1)
  1. COSENTYX [Suspect]
     Active Substance: SECUKINUMAB
     Indication: PSORIATIC ARTHROPATHY
     Dosage: 300 MG, QMO
     Route: 058
     Dates: start: 20180201, end: 201806

REACTIONS (6)
  - Pleural thickening [Unknown]
  - Drug effect incomplete [Unknown]
  - Metastases to spine [Unknown]
  - Concomitant disease aggravated [Unknown]
  - Metastases to pelvis [Unknown]
  - Arthralgia [Unknown]
